FAERS Safety Report 20631587 (Version 1)
Quarter: 2022Q1

REPORT INFORMATION
  Report Type: Spontaneous
  Country: TW (occurrence: TW)
  Receive Date: 20220324
  Receipt Date: 20220324
  Transmission Date: 20220423
  Serious: Yes (Other)
  Sender: FDA-Public Use
  Company Number: TW-MYLANLABS-2022M1021743

PATIENT
  Age: 38 Year
  Sex: Female

DRUGS (20)
  1. METHOTREXATE [Suspect]
     Active Substance: METHOTREXATE
     Indication: T-cell lymphoma stage II
     Dosage: UNK, GRAALL 2003 REGIMEN
     Route: 065
  2. PREDNISONE [Suspect]
     Active Substance: PREDNISONE
     Indication: T-cell lymphoma stage II
     Dosage: UNK, GRAALL 2003 REGIMEN
     Route: 065
  3. DAUNORUBICIN [Suspect]
     Active Substance: DAUNORUBICIN
     Indication: T-cell lymphoma stage II
     Dosage: UNK, GRAALL 2003 REGIMEN
     Route: 065
  4. VINCRISTINE [Suspect]
     Active Substance: VINCRISTINE
     Indication: T-cell lymphoma stage II
     Dosage: UNK, GRAALL 2003 REGIMEN
     Route: 065
  5. CYCLOPHOSPHAMIDE [Suspect]
     Active Substance: CYCLOPHOSPHAMIDE
     Indication: T-cell lymphoma stage II
     Dosage: UNK, GRAALL 2003 REGIMEN
     Route: 065
  6. IDARUBICIN [Suspect]
     Active Substance: IDARUBICIN
     Indication: T-cell lymphoma stage II
     Dosage: UNK, GRAALL 2003 REGIMEN
     Route: 065
  7. IDARUBICIN [Suspect]
     Active Substance: IDARUBICIN
     Dosage: UNK, ESHAP REGIMEN
     Route: 065
  8. DEXAMETHASONE [Suspect]
     Active Substance: DEXAMETHASONE
     Indication: T-cell lymphoma stage II
     Dosage: UNK, GRAALL 2003 REGIMEN
     Route: 065
  9. MERCAPTOPURINE [Suspect]
     Active Substance: MERCAPTOPURINE
     Indication: T-cell lymphoma stage II
     Dosage: UNK, GRAALL 2003 REGIMEN
     Route: 065
  10. ETOPOSIDE [Suspect]
     Active Substance: ETOPOSIDE
     Indication: T-cell lymphoma stage II
     Dosage: UNK, GRAALL 2003 REGIMEN
     Route: 065
  11. ETOPOSIDE [Suspect]
     Active Substance: ETOPOSIDE
     Dosage: UNK, ICE REGIMEN
     Route: 065
  12. ETOPOSIDE [Suspect]
     Active Substance: ETOPOSIDE
     Dosage: UNK, ESHAP REGIMEN
     Route: 065
  13. LENOGRASTIM [Suspect]
     Active Substance: LENOGRASTIM
     Indication: T-cell lymphoma stage II
     Dosage: UNK, GRAALL 2003 REGIMEN
     Route: 065
  14. ASPARAGINASE [Suspect]
     Active Substance: ASPARAGINASE
     Indication: T-cell lymphoma stage II
     Dosage: UNK, GRAALL 2003 REGIMEN
     Route: 065
  15. CYTARABINE [Suspect]
     Active Substance: CYTARABINE
     Indication: T-cell lymphoma stage II
     Dosage: UNK, GRAALL 2003 REGIMEN
     Route: 065
  16. CYTARABINE [Suspect]
     Active Substance: CYTARABINE
     Dosage: UNK, ESHAP REGIMEN
     Route: 065
  17. IFOSFAMIDE [Suspect]
     Active Substance: IFOSFAMIDE
     Indication: T-cell lymphoma stage II
     Dosage: UNK, ICE REGIMEN
     Route: 065
  18. CARBOPLATIN [Suspect]
     Active Substance: CARBOPLATIN
     Indication: T-cell lymphoma stage II
     Dosage: UNK, ICE REGIMEN
     Route: 065
  19. METHYLPREDNISOLONE [Suspect]
     Active Substance: METHYLPREDNISOLONE
     Indication: T-cell lymphoma stage II
     Dosage: UNK, ESHAP REGIMEN
     Route: 065
  20. CISPLATIN [Suspect]
     Active Substance: CISPLATIN
     Indication: T-cell lymphoma stage II
     Dosage: UNK, ESHAP REGIMEN
     Route: 065

REACTIONS (6)
  - Thrombocytopenia [Unknown]
  - Febrile neutropenia [Unknown]
  - Anaemia [Unknown]
  - Drug ineffective [Unknown]
  - Nausea [Unknown]
  - Vomiting [Unknown]
